FAERS Safety Report 4675506-0 (Version None)
Quarter: 2005Q2

REPORT INFORMATION
  Report Type: 
  Country: None (occurrence: None)
  Receive Date: 20050527
  Receipt Date: 20050325
  Transmission Date: 20051028
  Serious: Yes (Other)
  Sender: FDA-Public Use
  Company Number: US-BRISTOL-MYERS SQUIBB COMPANY-12912051

PATIENT
  Age: 47 Year
  Sex: Male

DRUGS (4)
  1. ABILIFY [Suspect]
     Indication: SCHIZOPHRENIA
  2. ATIVAN [Concomitant]
  3. THIAMINE [Concomitant]
  4. TRANSDERMAL NICOTINE [Concomitant]
     Route: 062

REACTIONS (1)
  - NEUTROPENIA [None]
